FAERS Safety Report 8489750-8 (Version None)
Quarter: 2012Q3

REPORT INFORMATION
  Report Type: 
  Country: None (occurrence: None)
  Receive Date: 20120705
  Receipt Date: 20120627
  Transmission Date: 20120928
  Serious: Yes (Hospitalization)
  Sender: FDA-Public Use
  Company Number: FR-GLAXOSMITHKLINE-B0812400A

PATIENT
  Sex: Male

DRUGS (2)
  1. ACETAMINOPHEN [Suspect]
     Indication: TENDONITIS
     Dosage: 1TAB PER DAY
     Route: 048
     Dates: start: 20120423, end: 20120423
  2. NABUMETONE [Suspect]
     Indication: TENDONITIS
     Dosage: 1TAB PER DAY
     Route: 048
     Dates: start: 20120423, end: 20120423

REACTIONS (1)
  - HYPONATRAEMIA [None]
